FAERS Safety Report 5890364-4 (Version None)
Quarter: 2008Q3

REPORT INFORMATION
  Report Type: 
  Country: None (occurrence: None)
  Receive Date: 20080918
  Receipt Date: 20080905
  Transmission Date: 20090109
  Serious: Yes (Hospitalization, Other)
  Sender: FDA-Public Use
  Company Number: 2007BI027367

PATIENT
  Age: 28 Year
  Sex: Female
  Weight: 56.6996 kg

DRUGS (9)
  1. TYSABRI [Suspect]
     Indication: MULTIPLE SCLEROSIS
     Dosage: 300 MG; QM; IV
     Route: 042
     Dates: start: 20070426
  2. BACLOFEN [Concomitant]
  3. AMANTADINE [Concomitant]
  4. ORAL CONTRACEPTIVE [Concomitant]
  5. WELLBUTRIN [Concomitant]
  6. VITAMIN [Concomitant]
  7. BOTOX [Concomitant]
  8. BETASERON [Concomitant]
  9. NOVANTRONE [Concomitant]

REACTIONS (18)
  - ASTHENIA [None]
  - BACTERIA URINE IDENTIFIED [None]
  - BLOOD ALBUMIN DECREASED [None]
  - BLOOD ALKALINE PHOSPHATASE DECREASED [None]
  - BLOOD URINE PRESENT [None]
  - COLITIS [None]
  - CONDITION AGGRAVATED [None]
  - GAIT DISTURBANCE [None]
  - GASTROENTERITIS [None]
  - HAEMATOCRIT DECREASED [None]
  - HAEMOGLOBIN DECREASED [None]
  - IMMUNE SYSTEM DISORDER [None]
  - MULTIPLE SCLEROSIS [None]
  - MUSCULAR WEAKNESS [None]
  - PLATELET COUNT DECREASED [None]
  - SHIGELLA INFECTION [None]
  - SYNCOPE [None]
  - URINARY RETENTION [None]
